FAERS Safety Report 23066633 (Version 1)
Quarter: 2023Q4

REPORT INFORMATION
  Report Type: Report from Study
  Country: CA (occurrence: CA)
  Receive Date: 20231016
  Receipt Date: 20231016
  Transmission Date: 20240109
  Serious: Yes (Hospitalization, Other)
  Sender: FDA-Public Use
  Company Number: CA-ABBVIE-5393983

PATIENT
  Sex: Male

DRUGS (1)
  1. SKYRIZI [Suspect]
     Active Substance: RISANKIZUMAB-RZAA
     Indication: Crohn^s disease
     Dosage: FREQUENCY TEXT: EVERY 4 WEEKS FOR 3 DOSES?FREQUENCY TEXT: 0,4,8 WEEK + THE 360 MG SC AT WEEK 12 A...
     Route: 042
     Dates: start: 20230817

REACTIONS (7)
  - Sepsis [Unknown]
  - Nausea [Unknown]
  - Infection [Recovering/Resolving]
  - Headache [Recovered/Resolved]
  - Arthralgia [Unknown]
  - Headache [Recovered/Resolved]
  - Cardiac disorder [Unknown]

NARRATIVE: CASE EVENT DATE: 20230101
